FAERS Safety Report 14279197 (Version 1)
Quarter: 2017Q4

REPORT INFORMATION
  Report Type: Spontaneous
  Country: US (occurrence: US)
  Receive Date: 20171212
  Receipt Date: 20171212
  Transmission Date: 20180321
  Serious: Yes (Hospitalization, Other)
  Sender: FDA-Public Use
  Company Number: US-SAOL THERAPEUTICS-2017SAO03436

PATIENT
  Sex: Male

DRUGS (3)
  1. PRIALT [Suspect]
     Active Substance: ZICONOTIDE ACETATE
     Route: 037
  2. BACLOFEN. [Suspect]
     Active Substance: BACLOFEN
     Indication: SPINAL PAIN
     Route: 037
  3. DILAUDID [Suspect]
     Active Substance: HYDROMORPHONE HYDROCHLORIDE
     Route: 037

REACTIONS (9)
  - Pain [Unknown]
  - Off label use [Unknown]
  - Patella fracture [Unknown]
  - Femur fracture [Unknown]
  - Lymphadenopathy [Unknown]
  - Fall [Unknown]
  - Hip fracture [Unknown]
  - Post procedural complication [Unknown]
  - Joint dislocation [Unknown]

NARRATIVE: CASE EVENT DATE: 201704
